FAERS Safety Report 8437819-6 (Version None)
Quarter: 2012Q2

REPORT INFORMATION
  Report Type: 
  Country: None (occurrence: None)
  Receive Date: 20120614
  Receipt Date: 20120508
  Transmission Date: 20120825
  Serious: No
  Sender: FDA-Public Use
  Company Number: US-AMGEN-USASP2012029258

PATIENT
  Age: 74 Year
  Sex: Male

DRUGS (2)
  1. ZOMETA [Concomitant]
     Dosage: UNK
  2. XGEVA [Suspect]
     Indication: PROSTATE CANCER
     Dosage: UNK
     Dates: start: 20110101

REACTIONS (2)
  - TREATMENT NONCOMPLIANCE [None]
  - POOR DENTAL CONDITION [None]
